FAERS Safety Report 5201880-2 (Version None)
Quarter: 2006Q4

REPORT INFORMATION
  Report Type: 
  Country: None (occurrence: None)
  Receive Date: 20061010
  Receipt Date: 20050812
  Transmission Date: 20070319
  Serious: Yes (Hospitalization, Other)
  Sender: FDA-Public Use
  Company Number: 2005-08-0935

PATIENT
  Age: 28 Year
  Sex: Female
  Weight: 49.8957 kg

DRUGS (8)
  1. TEMODAR [Suspect]
     Indication: GLIOBLASTOMA MULTIFORME
     Dosage: 750 MG  QD X5D   ORAL
     Route: 048
     Dates: start: 20050722, end: 20050726
  2. RADIATION THERAPY [Concomitant]
  3. MARINOL [Concomitant]
  4. DILANTIN [Concomitant]
  5. PRILOSEC [Concomitant]
  6. VICODIN [Concomitant]
  7. DECADRON [Concomitant]
  8. TEMODAR [Suspect]
     Indication: GLIOBLASTOMA MULTIFORME
     Dosage: ORAL
     Route: 048

REACTIONS (8)
  - ASPARTATE AMINOTRANSFERASE INCREASED [None]
  - CANDIDIASIS [None]
  - FATIGUE [None]
  - NAUSEA [None]
  - OVERDOSE [None]
  - PLATELET COUNT DECREASED [None]
  - PYREXIA [None]
  - WHITE BLOOD CELL COUNT DECREASED [None]
